FAERS Safety Report 8481204-8 (Version None)
Quarter: 2012Q3

REPORT INFORMATION
  Report Type: 
  Country: None (occurrence: None)
  Receive Date: 20120702
  Receipt Date: 20120620
  Transmission Date: 20120928
  Serious: Yes (Hospitalization, Other)
  Sender: FDA-Public Use
  Company Number: FR-ASTRAZENECA-2012SE42032

PATIENT
  Age: 46 Year
  Sex: Female

DRUGS (22)
  1. DIPRIVAN [Suspect]
     Route: 042
     Dates: start: 20110901, end: 20110901
  2. SUPRANE [Suspect]
     Indication: ANAESTHESIA
     Route: 055
     Dates: start: 20071011, end: 20071011
  3. PARACETAMOL [Concomitant]
     Dates: start: 20110201, end: 20110201
  4. SUFENTANIL CITRATE [Suspect]
     Route: 042
     Dates: start: 20110201, end: 20110201
  5. SUFENTANIL CITRATE [Suspect]
     Route: 042
     Dates: start: 20111104, end: 20111104
  6. PARACETAMOL [Concomitant]
     Dates: start: 20050404, end: 20050404
  7. DIPRIVAN [Suspect]
     Route: 042
     Dates: start: 20110201, end: 20110201
  8. SUPRANE [Suspect]
     Route: 055
     Dates: start: 20111104, end: 20111104
  9. SUFENTANIL CITRATE [Suspect]
     Route: 042
     Dates: start: 20050404, end: 20050404
  10. DIPRIVAN [Suspect]
     Route: 042
     Dates: start: 20111104, end: 20111104
  11. KETOPROFEN [Concomitant]
     Route: 042
     Dates: start: 20110201, end: 20110201
  12. PARACETAMOL [Concomitant]
     Dates: start: 20071011, end: 20071011
  13. PARACETAMOL [Concomitant]
     Dates: start: 20110901, end: 20110901
  14. DIPRIVAN [Suspect]
     Route: 042
     Dates: start: 20071011, end: 20071011
  15. SEVOFLURANE [Suspect]
     Indication: ANAESTHESIA
     Route: 055
     Dates: start: 20050404, end: 20050404
  16. SEVOFLURANE [Suspect]
     Route: 055
     Dates: start: 20110201, end: 20110201
  17. KETOPROFEN [Concomitant]
     Route: 042
     Dates: start: 20110901, end: 20110901
  18. SUFENTANIL CITRATE [Suspect]
     Indication: ANAESTHESIA
     Route: 042
     Dates: start: 20110901, end: 20110901
  19. DIPRIVAN [Suspect]
     Indication: ANAESTHESIA
     Route: 042
     Dates: start: 20050404, end: 20050404
  20. SEVOFLURANE [Suspect]
     Route: 055
     Dates: start: 20110901, end: 20110901
  21. SUFENTANIL CITRATE [Suspect]
     Route: 042
     Dates: start: 20071011, end: 20071011
  22. PARACETAMOL [Concomitant]
     Dates: start: 20111104, end: 20111104

REACTIONS (2)
  - TRANSAMINASES INCREASED [None]
  - HEPATITIS [None]
